FAERS Safety Report 20389801 (Version 1)
Quarter: 2022Q1

REPORT INFORMATION
  Report Type: Spontaneous
  Country: RO (occurrence: RO)
  Receive Date: 20220128
  Receipt Date: 20220128
  Transmission Date: 20220423
  Serious: Yes (Death)
  Sender: FDA-Public Use
  Company Number: None

PATIENT
  Age: 65 Year
  Sex: Male

DRUGS (7)
  1. METOPROLOL SUCCINATE [Suspect]
     Active Substance: METOPROLOL SUCCINATE
     Route: 048
  2. SINTROM [Concomitant]
     Active Substance: ACENOCOUMAROL
     Dosage: FOR 2 YEARS
  3. PERINDOPRIL [Concomitant]
     Active Substance: PERINDOPRIL
  4. AZILECT [Concomitant]
     Active Substance: RASAGILINE MESYLATE
  5. NEUPRO [Concomitant]
     Active Substance: ROTIGOTINE
  6. DIGOXIN [Concomitant]
     Active Substance: DIGOXIN
  7. FUROSEMIDE [Concomitant]
     Active Substance: FUROSEMIDE
     Dosage: 10 MG EVERY 30 MINUTES

REACTIONS (1)
  - Cardiac arrest [Fatal]
